FAERS Safety Report 20827986 (Version 1)
Quarter: 2022Q2

REPORT INFORMATION
  Report Type: Spontaneous
  Country: US (occurrence: US)
  Receive Date: 20220513
  Receipt Date: 20220513
  Transmission Date: 20220720
  Serious: No
  Sender: FDA-Public Use
  Company Number: US-SANOFI-01089532

PATIENT
  Age: 83 Year
  Sex: Female

DRUGS (1)
  1. SOLIQUA 100/33 [Suspect]
     Active Substance: INSULIN GLARGINE\LIXISENATIDE
     Indication: Type 2 diabetes mellitus
     Dosage: DRUG STRUCTURE DOSAGE : 40 UNITS DRUG INTERVAL DOSAGE : ONCE A DAY DRUG TREATMENT DURATION:220 UNITS

REACTIONS (2)
  - Injection site pain [Unknown]
  - Needle issue [Unknown]
